FAERS Safety Report 14030926 (Version 5)
Quarter: 2019Q2

REPORT INFORMATION
  Report Type: Spontaneous
  Country: IT (occurrence: IT)
  Receive Date: 20171002
  Receipt Date: 20190527
  Transmission Date: 20190711
  Serious: Yes (Hospitalization)
  Sender: FDA-Public Use
  Company Number: IT-ROCHE-2000210

PATIENT
  Age: 71 Year
  Sex: Female

DRUGS (11)
  1. DIAMICRON [Suspect]
     Active Substance: GLICLAZIDE
     Indication: INTENTIONAL SELF-INJURY
     Dosage: 450 MG
     Route: 048
     Dates: start: 20170421, end: 20170421
  2. KARVEA [Concomitant]
     Active Substance: IRBESARTAN
     Dosage: 28 TABLETS 75 MG
     Route: 065
  3. GANFORT [Concomitant]
     Active Substance: BIMATOPROST\TIMOLOL
     Dosage: 300 MCG/ML + 5 MG/ML EYE DROPS (SOLUTION FOR OPHTHALMIC USE)
     Route: 065
  4. OMEPRAZOLE. [Concomitant]
     Active Substance: OMEPRAZOLE
     Dosage: 20 MG GASTRO-RESISTANT TABLETS??REPORTED AS GASTROLOC
     Route: 065
  5. CARDIRENE [Concomitant]
     Active Substance: ASPIRIN DL-LYSINE
     Dosage: 75 MG POWDER FOR ORAL SOLUTION
     Route: 065
  6. ZOLOFT [Concomitant]
     Active Substance: SERTRALINE HYDROCHLORIDE
     Indication: PRODUCT USED FOR UNKNOWN INDICATION
     Dosage: 50 MG, UNK
     Route: 065
  7. RIVOTRIL [Suspect]
     Active Substance: CLONAZEPAM
     Indication: INTENTIONAL SELF-INJURY
     Dosage: 2.5 MG/ML ORAL DROPS, SOLUTION?25 MG
     Route: 048
     Dates: start: 20170421, end: 20170421
  8. CRESTOR [Concomitant]
     Active Substance: ROSUVASTATIN CALCIUM
     Indication: PRODUCT USED FOR UNKNOWN INDICATION
     Dosage: 5 MG FILM COATED TABLETS, 28 TABLETS
     Route: 065
  9. BISOPROLOL FUMARATE. [Concomitant]
     Active Substance: BISOPROLOL FUMARATE
  10. METFORMIN HYDROCHLORIDE. [Concomitant]
     Active Substance: METFORMIN HYDROCHLORIDE
     Route: 065
  11. TOPAMAX [Concomitant]
     Active Substance: TOPIRAMATE
     Dosage: 15 MG HARD CAPSULES 60 CAPSULES
     Route: 065

REACTIONS (5)
  - Sopor [Unknown]
  - Drug abuse [Unknown]
  - Intentional self-injury [Unknown]
  - Photophobia [Unknown]
  - Intentional overdose [Unknown]

NARRATIVE: CASE EVENT DATE: 20170421
